FAERS Safety Report 7185673-5 (Version None)
Quarter: 2010Q4

REPORT INFORMATION
  Report Type: 
  Country: None (occurrence: None)
  Receive Date: 20101222
  Receipt Date: 20101214
  Transmission Date: 20110411
  Serious: Yes (Death)
  Sender: FDA-Public Use
  Company Number: PHHY2010US86072

PATIENT
  Sex: Male

DRUGS (4)
  1. GLEEVEC [Suspect]
     Indication: LEUKAEMIA
  2. LISINOPRIL [Concomitant]
     Indication: HYPERTENSION
  3. ALBUTEROL [Concomitant]
  4. STEROIDS NOS [Concomitant]

REACTIONS (1)
  - DEATH [None]
